FAERS Safety Report 16625307 (Version 1)
Quarter: 2019Q3

REPORT INFORMATION
  Report Type: Spontaneous
  Country: US (occurrence: US)
  Receive Date: 20190724
  Receipt Date: 20190724
  Transmission Date: 20191004
  Serious: Yes (Hospitalization)
  Sender: FDA-Public Use
  Company Number: None

PATIENT
  Age: 70 Year
  Sex: Male

DRUGS (9)
  1. FUROSEMIDE. [Concomitant]
     Active Substance: FUROSEMIDE
  2. SPIRONOLACTONE. [Concomitant]
     Active Substance: SPIRONOLACTONE
  3. ATORVASTATIN [Concomitant]
     Active Substance: ATORVASTATIN
  4. METOLAZONE. [Concomitant]
     Active Substance: METOLAZONE
  5. PANTOPRAZOLE [Concomitant]
     Active Substance: PANTOPRAZOLE
  6. TORSEMIDE. [Concomitant]
     Active Substance: TORSEMIDE
  7. TADALAFIL. [Suspect]
     Active Substance: TADALAFIL
     Indication: PULMONARY HYPERTENSION
     Route: 048
     Dates: start: 20180907
  8. FOLIC ACID. [Concomitant]
     Active Substance: FOLIC ACID
  9. POT CL MICRO TAB [Concomitant]

REACTIONS (1)
  - Hospitalisation [None]

NARRATIVE: CASE EVENT DATE: 20190618
